FAERS Safety Report 5822197-9 (Version None)
Quarter: 2008Q3

REPORT INFORMATION
  Report Type: 
  Country: None (occurrence: None)
  Receive Date: 20080723
  Receipt Date: 20080723
  Transmission Date: 20090109
  Serious: Yes (Life-Threatening)
  Sender: FDA-Public Use
  Company Number: None

PATIENT
  Age: 53 Year
  Sex: Male
  Weight: 115.2136 kg

DRUGS (1)
  1. SIMVASTATIN [Suspect]
     Indication: BLOOD CHOLESTEROL INCREASED
     Dosage: 20 MG 1 DAILY PO
     Route: 048
     Dates: start: 20070818, end: 20071031

REACTIONS (5)
  - BLUE TOE SYNDROME [None]
  - GANGRENE [None]
  - LIVEDO RETICULARIS [None]
  - ONYCHOMADESIS [None]
  - SKIN EXFOLIATION [None]
